FAERS Safety Report 21592167 (Version 2)
Quarter: 2024Q1

REPORT INFORMATION
  Report Type: Report from Study
  Country: US (occurrence: US)
  Receive Date: 20221114
  Receipt Date: 20240125
  Transmission Date: 20240409
  Serious: Yes (Other)
  Sender: FDA-Public Use
  Company Number: US-ABBVIE-4153984

PATIENT
  Age: 39 Year
  Sex: Female
  Weight: 99.79 kg

DRUGS (2)
  1. HUMIRA [Suspect]
     Active Substance: ADALIMUMAB
     Indication: Hidradenitis
     Route: 058
     Dates: start: 20230429, end: 20230430
  2. MODERNA COVID-19 VACCINE [Concomitant]
     Active Substance: ELASOMERAN
     Indication: COVID-19 immunisation
     Dosage: ONE IN ONCE
     Route: 030

REACTIONS (8)
  - Epidural injection [Unknown]
  - Injection related reaction [Recovered/Resolved]
  - Injection site pruritus [Recovered/Resolved]
  - Maternal exposure during pregnancy [Unknown]
  - Injection site erythema [Recovered/Resolved]
  - Chlamydial infection [Unknown]
  - Injection site irritation [Unknown]
  - Live birth [Unknown]

NARRATIVE: CASE EVENT DATE: 20230429
